FAERS Safety Report 9138018 (Version 1)
Quarter: 2013Q1

REPORT INFORMATION
  Report Type: Spontaneous
  Country: US (occurrence: US)
  Receive Date: 20130304
  Receipt Date: 20130304
  Transmission Date: 20140127
  Serious: No
  Sender: FDA-Public Use
  Company Number: US-ABBOTT-11P-163-0804582-00

PATIENT
  Sex: Male
  Weight: 88.53 kg

DRUGS (7)
  1. ANDROGEL 1% [Suspect]
     Indication: BLOOD TESTOSTERONE DECREASED
     Dosage: DAILY DOSE: 5 GRAM(S), VIA PUMP
     Route: 062
  2. ANDROGEL 1.62% [Suspect]
     Indication: BLOOD TESTOSTERONE DECREASED
     Route: 061
  3. LYRICA [Concomitant]
     Indication: NEURALGIA
     Dosage: DAILY DOSE:  UNKNOWN
     Route: 065
     Dates: start: 2009
  4. OXYCONTIN [Concomitant]
     Indication: NEURALGIA
     Dosage: DAILY DOSE:  UNKNOWN
     Route: 065
  5. VALIUM [Concomitant]
     Indication: NEURALGIA
     Dosage: DAILY DOSE:  UNKNOWN, FREQUENCY: AS NEEDED.
     Route: 065
  6. SKELAXIN [Concomitant]
     Indication: NEURALGIA
     Dosage: DAILY DOSE:  UNKNOWN, FREQUENCY: AS NEEDED.
     Route: 065
  7. PERCOCET [Concomitant]
     Indication: PRODUCT USED FOR UNKNOWN INDICATION

REACTIONS (5)
  - Pruritus [Not Recovered/Not Resolved]
  - Pruritus [Not Recovered/Not Resolved]
  - Skin burning sensation [Not Recovered/Not Resolved]
  - Erythema [Not Recovered/Not Resolved]
  - Application site rash [Not Recovered/Not Resolved]
